FAERS Safety Report 9259666 (Version 4)
Quarter: 2013Q3

REPORT INFORMATION
  Report Type: Spontaneous
  Country: DE (occurrence: DE)
  Receive Date: 20130429
  Receipt Date: 20130820
  Transmission Date: 20140515
  Serious: Yes (Hospitalization, Other)
  Sender: FDA-Public Use
  Company Number: DE-BIOGENIDEC-2013BI036634

PATIENT
  Age: 33 Year
  Sex: Female

DRUGS (4)
  1. TYSABRI [Suspect]
     Indication: MULTIPLE SCLEROSIS
     Dates: start: 200712, end: 20120919
  2. TYSABRI [Suspect]
     Indication: MULTIPLE SCLEROSIS
     Dates: start: 20130403
  3. CORTISONE [Concomitant]
     Indication: MULTIPLE SCLEROSIS RELAPSE
     Dates: start: 201301
  4. IMMUNOGLOBULINS [Concomitant]
     Indication: MULTIPLE SCLEROSIS RELAPSE

REACTIONS (4)
  - Escherichia sepsis [Recovered/Resolved]
  - Jugular vein thrombosis [Recovered/Resolved]
  - Cystitis escherichia [Recovered/Resolved]
  - Twin pregnancy [Recovered/Resolved]
